FAERS Safety Report 6615768-3 (Version None)
Quarter: 2010Q1

REPORT INFORMATION
  Report Type: 
  Country: None (occurrence: None)
  Receive Date: 20100305
  Receipt Date: 20100302
  Transmission Date: 20100710
  Serious: Yes (Hospitalization)
  Sender: FDA-Public Use
  Company Number: CH-WYE-G05671810

PATIENT
  Age: 50 Year
  Sex: Male

DRUGS (12)
  1. TAZOBACTAM [Suspect]
     Indication: ANTIBIOTIC PROPHYLAXIS
     Route: 042
     Dates: start: 20100131, end: 20100205
  2. TAZOBACTAM [Interacting]
     Indication: PYREXIA
  3. NOVALGIN [Interacting]
     Indication: PYREXIA
     Route: 042
     Dates: start: 20100129, end: 20100129
  4. NOVALGIN [Interacting]
     Route: 042
     Dates: start: 20100204, end: 20100204
  5. NOVALGIN [Interacting]
     Route: 042
     Dates: start: 20100205, end: 20100205
  6. FRAGMIN [Concomitant]
     Dosage: UNKNOWN
     Route: 058
  7. PARACETAMOL [Concomitant]
     Dates: start: 20100101
  8. CIPROXIN [Concomitant]
     Dates: start: 20100205, end: 20100208
  9. OBRACIN [Interacting]
     Indication: ANTIBIOTIC PROPHYLAXIS
     Route: 042
     Dates: start: 20100121, end: 20100101
  10. OBRACIN [Interacting]
     Route: 042
     Dates: start: 20100101, end: 20100205
  11. TAMIFLU [Concomitant]
     Indication: INFLUENZA
     Dates: start: 20100204, end: 20100205
  12. TAMIFLU [Concomitant]
     Indication: INFECTION

REACTIONS (2)
  - DRUG INTERACTION [None]
  - GRANULOCYTOPENIA [None]
